FAERS Safety Report 12735482 (Version 1)
Quarter: 2016Q3

REPORT INFORMATION
  Report Type: Spontaneous
  Country: BR (occurrence: BR)
  Receive Date: 20160912
  Receipt Date: 20160912
  Transmission Date: 20161109
  Serious: Yes (Other)
  Sender: FDA-Public Use
  Company Number: BR-PFIZER INC-2016420049

PATIENT
  Sex: Female

DRUGS (1)
  1. PREMARIN [Suspect]
     Active Substance: ESTROGENS, CONJUGATED
     Indication: HORMONE REPLACEMENT THERAPY

REACTIONS (12)
  - Hypotonia [Unknown]
  - Abdominal distension [Unknown]
  - Weight increased [Unknown]
  - Muscle fatigue [Unknown]
  - Superficial vein prominence [Unknown]
  - Vascular pain [Unknown]
  - Varicose vein [Unknown]
  - Myalgia [Unknown]
  - Fluid retention [Unknown]
  - Vein rupture [Unknown]
  - Oedema peripheral [Unknown]
  - Muscle spasms [Unknown]
